FAERS Safety Report 9109071 (Version 1)
Quarter: 2013Q1

REPORT INFORMATION
  Report Type: Spontaneous
  Country: TT (occurrence: TT)
  Receive Date: 20130222
  Receipt Date: 20130222
  Transmission Date: 20140127
  Serious: Yes (Other)
  Sender: FDA-Public Use
  Company Number: TT-GLAXOSMITHKLINE-A1013303A

PATIENT
  Age: 27 Year
  Sex: Male

DRUGS (1)
  1. PAXIL [Suspect]
     Indication: ANXIETY
     Dosage: 1.5TAB PER DAY
     Route: 065

REACTIONS (6)
  - Intentional self-injury [Unknown]
  - Lethargy [Unknown]
  - Social avoidant behaviour [Unknown]
  - Disturbance in attention [Unknown]
  - Hallucination [Unknown]
  - Hallucination, auditory [Unknown]
